FAERS Safety Report 21410661 (Version 1)
Quarter: 2022Q4

REPORT INFORMATION
  Report Type: Spontaneous
  Country: US (occurrence: None)
  Receive Date: 20221004
  Receipt Date: 20221004
  Transmission Date: 20230113
  Serious: No
  Sender: FDA-Public Use
  Company Number: None

PATIENT
  Sex: Male
  Weight: 133.8 kg

DRUGS (9)
  1. CARBOPLATIN [Suspect]
     Active Substance: CARBOPLATIN
     Indication: Chemotherapy
     Dates: end: 20220616
  2. TAXOL [Suspect]
     Active Substance: PACLITAXEL
     Indication: Chemotherapy
     Dates: end: 20220616
  3. PHENLEPHRINE [Concomitant]
  4. FENTANYL [Concomitant]
     Active Substance: FENTANYL
  5. HYDROMORPHONE [Concomitant]
     Active Substance: HYDROMORPHONE
  6. LYRICA [Concomitant]
     Active Substance: PREGABALIN
  7. OXYCODONE [Concomitant]
     Active Substance: OXYCODONE
  8. PROPOFOL [Concomitant]
     Active Substance: PROPOFOL
  9. ROCURONIUM [Concomitant]
     Active Substance: ROCURONIUM BROMIDE

REACTIONS (10)
  - Hypotension [None]
  - Hypovolaemic shock [None]
  - Incision site oedema [None]
  - Incision site erythema [None]
  - White blood cell count increased [None]
  - Bacterial infection [None]
  - Acute respiratory distress syndrome [None]
  - Bradycardia [None]
  - Troponin increased [None]
  - Acute myocardial infarction [None]

NARRATIVE: CASE EVENT DATE: 20220908
